FAERS Safety Report 14265877 (Version 2)
Quarter: 2017Q4

REPORT INFORMATION
  Report Type: Spontaneous
  Country: NL (occurrence: NL)
  Receive Date: 20171209
  Receipt Date: 20171227
  Transmission Date: 20180321
  Serious: Yes (Other)
  Sender: FDA-Public Use
  Company Number: NL-BAXTER-2017BAX040860

PATIENT
  Age: 14 Year
  Sex: Male
  Weight: 49.3 kg

DRUGS (9)
  1. VINCRISTINE [Suspect]
     Active Substance: VINCRISTINE
     Dosage: 2 CYCLES (IVE)
     Route: 065
  2. HOLOXAN, POEDER VOOR OPLOSSING VOOR INFUSIE [Suspect]
     Active Substance: IFOSFAMIDE
     Indication: RHABDOMYOSARCOMA
     Dosage: 3 CYCLES (IVA)
     Route: 065
  3. EPIRUBICIN [Suspect]
     Active Substance: EPIRUBICIN
     Indication: RHABDOMYOSARCOMA
     Dosage: 5 MG/KG, UNK (1 COURSE (CEV)
     Route: 065
  4. VINCRISTINE [Suspect]
     Active Substance: VINCRISTINE
     Indication: RHABDOMYOSARCOMA
     Dosage: 3 CYCLES (IVA)
     Route: 065
  5. HOLOXAN, POEDER VOOR OPLOSSING VOOR INFUSIE [Suspect]
     Active Substance: IFOSFAMIDE
     Dosage: 2 CYCLES (IVE)
     Route: 065
  6. ACTINOMYCIN D [Suspect]
     Active Substance: DACTINOMYCIN
     Indication: RHABDOMYOSARCOMA
     Dosage: 3 CYCLES (IVA)
     Route: 065
  7. ETOPOSIDE. [Suspect]
     Active Substance: ETOPOSIDE
     Indication: RHABDOMYOSARCOMA
     Dosage: 2 CYCLES (IVE)
     Route: 065
  8. CARBOPLATIN. [Suspect]
     Active Substance: CARBOPLATIN
     Indication: RHABDOMYOSARCOMA
     Dosage: 34 MG/KG, UNK, 1 COURSE (CEV)
     Route: 065
  9. VINCRISTINE [Suspect]
     Active Substance: VINCRISTINE
     Dosage: 1 COURSE (CEV)
     Route: 065

REACTIONS (5)
  - Drug resistance [Unknown]
  - Delayed puberty [Unknown]
  - Speech disorder [Unknown]
  - Nervous system disorder [Unknown]
  - Osteopenia [Unknown]
